FAERS Safety Report 4547516-5 (Version None)
Quarter: 2005Q1

REPORT INFORMATION
  Report Type: 
  Country: None (occurrence: None)
  Receive Date: 20050107
  Receipt Date: 20050103
  Transmission Date: 20050727
  Serious: Yes (Other)
  Sender: FDA-Public Use
  Company Number: PHBS2005GB00475

PATIENT
  Age: 49 Year
  Sex: Male

DRUGS (9)
  1. CYCLOSPORINE [Suspect]
     Indication: RENAL TRANSPLANT
     Route: 065
  2. SIROLIMUS [Suspect]
     Indication: RENAL TRANSPLANT
  3. PREDNISOLONE [Concomitant]
     Dosage: 30 MG/DAY
  4. ATENOLOL [Concomitant]
  5. AMLODIPINE [Concomitant]
  6. DOXAZOSIN [Concomitant]
  7. PYRIDOXINE HCL [Concomitant]
  8. ISONIAZID [Concomitant]
  9. ATORVASTATIN [Concomitant]

REACTIONS (5)
  - C-REACTIVE PROTEIN INCREASED [None]
  - COUGH [None]
  - DYSPNOEA EXERTIONAL [None]
  - FATIGUE [None]
  - PNEUMONITIS [None]
